FAERS Safety Report 17099747 (Version 1)
Quarter: 2019Q4

REPORT INFORMATION
  Report Type: Spontaneous
  Country: FR (occurrence: FR)
  Receive Date: 20191202
  Receipt Date: 20191202
  Transmission Date: 20200122
  Serious: Yes (Hospitalization)
  Sender: FDA-Public Use
  Company Number: FR-MYLANLABS-2019M1115467

PATIENT
  Age: 2 Month
  Sex: Male

DRUGS (1)
  1. NALBUPHINE MYLAN 20 MG/ 2ML, SOLUTION INJECTABLE (IV-SC-IM) [Suspect]
     Active Substance: NALBUPHINE
     Indication: PAIN
     Dosage: 20 MILLIGRAM, TOTAL
     Route: 042
     Dates: start: 20190522, end: 20190522

REACTIONS (2)
  - Wrong rate [Recovered/Resolved]
  - Somnolence [Recovered/Resolved]

NARRATIVE: CASE EVENT DATE: 20190522
